FAERS Safety Report 18038077 (Version 3)
Quarter: 2020Q4

REPORT INFORMATION
  Report Type: Report from Study
  Country: FR (occurrence: FR)
  Receive Date: 20200717
  Receipt Date: 20201104
  Transmission Date: 20210113
  Serious: Yes (Hospitalization, Other)
  Sender: FDA-Public Use
  Company Number: FR-MYLANLABS-2020M1063708

PATIENT
  Age: 63 Year
  Sex: Female
  Weight: 71 kg

DRUGS (16)
  1. ANTITHYMOCYTE IMMUNOGLOBULIN [Suspect]
     Active Substance: THYMOCYTE IMMUNE GLOBULIN NOS
     Indication: PROPHYLAXIS AGAINST GRAFT VERSUS HOST DISEASE
     Dosage: 660 MILLIGRAM, QD
     Route: 042
     Dates: start: 20181103, end: 20181105
  2. ITACITINIB [Suspect]
     Active Substance: ITACITINIB
     Indication: PRODUCT USED FOR UNKNOWN INDICATION
     Dosage: 100 MILLIGRAM, QD
     Dates: start: 20181103
  3. CICLOSPORIN [Suspect]
     Active Substance: CYCLOSPORINE
     Indication: PROPHYLAXIS AGAINST GRAFT VERSUS HOST DISEASE
     Dosage: 220 MILLIGRAM, QD
     Route: 048
     Dates: start: 20181105, end: 20181109
  4. CICLOSPORIN [Suspect]
     Active Substance: CYCLOSPORINE
     Dosage: 100 MILLIGRAM, QD
     Route: 048
     Dates: start: 20181110, end: 20181113
  5. CICLOSPORIN [Suspect]
     Active Substance: CYCLOSPORINE
     Dosage: 60 MILLIGRAM, QD
     Route: 048
     Dates: start: 20181115, end: 20181115
  6. AXEPIM [Suspect]
     Active Substance: CEFEPIME HYDROCHLORIDE
     Indication: PRODUCT USED FOR UNKNOWN INDICATION
     Dosage: UNK
  7. NOXAFIL [Suspect]
     Active Substance: POSACONAZOLE
     Dosage: UNK
  8. MYCOPHENOLATE MOFETIL. [Suspect]
     Active Substance: MYCOPHENOLATE MOFETIL
     Indication: PROPHYLAXIS AGAINST GRAFT VERSUS HOST DISEASE
     Dosage: 2000 MILLIGRAM, QD
     Route: 048
     Dates: start: 20181107
  9. ZYVOXID [Suspect]
     Active Substance: LINEZOLID
     Indication: PRODUCT USED FOR UNKNOWN INDICATION
     Dosage: UNK
  10. NOXAFIL [Suspect]
     Active Substance: POSACONAZOLE
     Indication: PRODUCT USED FOR UNKNOWN INDICATION
     Dosage: UNK
     Dates: start: 20181107, end: 20181120
  11. ZOLPIDEM [Concomitant]
     Active Substance: ZOLPIDEM TARTRATE
     Dosage: UNK
     Dates: start: 20181031, end: 20181126
  12. CICLOSPORIN [Suspect]
     Active Substance: CYCLOSPORINE
     Dosage: 40 MILLIGRAM, QD
     Route: 048
     Dates: start: 20181117, end: 20181122
  13. CICLOSPORIN [Suspect]
     Active Substance: CYCLOSPORINE
     Dosage: 50 MILLIGRAM, QD
     Route: 048
     Dates: start: 20181124
  14. INCB039110 [Suspect]
     Active Substance: ITACITINIB
     Indication: PROPHYLAXIS AGAINST GRAFT VERSUS HOST DISEASE
     Dosage: 200 MILLIGRAM, QD
     Route: 048
     Dates: start: 20181103, end: 20181109
  15. INCB039110 [Suspect]
     Active Substance: ITACITINIB
     Dosage: 100 MILLIGRAM, QD
     Route: 048
     Dates: start: 20181123, end: 20190207
  16. PANTOPRAZOLE [Concomitant]
     Active Substance: PANTOPRAZOLE
     Dosage: 40 MILLIGRAM

REACTIONS (10)
  - Asthenia [Unknown]
  - Cholestasis [Recovered/Resolved]
  - Skin lesion [Unknown]
  - Dysphagia [Unknown]
  - Hepatocellular injury [Unknown]
  - Erythema [Unknown]
  - Diarrhoea [Unknown]
  - Bone marrow failure [Not Recovered/Not Resolved]
  - Jaundice [Unknown]
  - Cell death [Recovered/Resolved]

NARRATIVE: CASE EVENT DATE: 20181108
